FAERS Safety Report 7639928 (Version 2)
Quarter: 2013Q2

REPORT INFORMATION
  Report Type: Spontaneous
  Country: US (occurrence: US)
  Receive Date: 20101026
  Receipt Date: 20130429
  Transmission Date: 20140414
  Serious: No
  Sender: FDA-Public Use
  Company Number: US-PFIZER INC-2010132876

PATIENT
  Age: 35 Year
  Sex: Female
  Weight: 84 kg

DRUGS (9)
  1. GENOTROPIN [Suspect]
     Indication: GROWTH HORMONE DEFICIENCY
     Dosage: 0.3 MG, 1X/DAY
     Dates: start: 201010, end: 20130420
  2. GENOTROPIN [Suspect]
     Indication: HYPOPITUITARISM
  3. LEVOTHYROXINE [Concomitant]
     Indication: HYPERTHYROIDISM
     Dosage: 25 UG, 1X/DAY
  4. LEVOTHYROXINE [Concomitant]
     Dosage: 50 UG, 1X/DAY
  5. AMBIEN [Concomitant]
     Indication: INSOMNIA
     Dosage: 10 MG, 1X/DAY
  6. CYMBALTA [Concomitant]
     Indication: ANXIETY
     Dosage: 10 MG, UNK
  7. CYMBALTA [Concomitant]
     Indication: FIBROMYALGIA
     Dosage: 60 MG, 1X/DAY
  8. ZEGERID [Concomitant]
     Indication: GASTROOESOPHAGEAL REFLUX DISEASE
     Dosage: 40 MG, UNK
  9. OMEPRAZOLE [Concomitant]
     Indication: ABDOMINAL DISCOMFORT
     Dosage: 40 MG, 2X/DAY

REACTIONS (3)
  - Oedema peripheral [Recovering/Resolving]
  - Product quality issue [Unknown]
  - Incorrect dose administered [Unknown]
